FAERS Safety Report 23065734 (Version 1)
Quarter: 2023Q4

REPORT INFORMATION
  Report Type: Report from Study
  Country: CA (occurrence: CA)
  Receive Date: 20231014
  Receipt Date: 20231014
  Transmission Date: 20240110
  Serious: No
  Sender: FDA-Public Use
  Company Number: CA-002147023-NVSC2023CA147469

PATIENT
  Age: 74 Year
  Sex: Female

DRUGS (1)
  1. ERELZI [Suspect]
     Active Substance: ETANERCEPT-SZZS
     Indication: Rheumatoid arthritis
     Dosage: 50 MG (FORMULATION PRE FILLED PEN)
     Route: 058
     Dates: start: 20221017

REACTIONS (3)
  - Pruritus [Unknown]
  - Skin lesion [Unknown]
  - Frustration tolerance decreased [Unknown]
